FAERS Safety Report 12281027 (Version 1)
Quarter: 2016Q2

REPORT INFORMATION
  Report Type: Report from Study
  Country: CN (occurrence: CN)
  Receive Date: 20160419
  Receipt Date: 20160419
  Transmission Date: 20160815
  Serious: Yes (Other)
  Sender: FDA-Public Use
  Company Number: CN-MYLANLABS-2016M1016237

PATIENT

DRUGS (2)
  1. ENDOSTAR [Concomitant]
     Active Substance: ENDOSTATIN
     Indication: NON-SMALL CELL LUNG CANCER
     Dosage: 15MG EVERY DAY FOR 14 DAYS EACH AT 3 WEEK INTERVALS
     Route: 042
  2. ERLOTINIB [Suspect]
     Active Substance: ERLOTINIB
     Indication: NON-SMALL CELL LUNG CANCER
     Dosage: 150 MG DAILY
     Route: 048

REACTIONS (1)
  - Drug resistance [Unknown]
